FAERS Safety Report 6530091-3 (Version None)
Quarter: 2010Q1

REPORT INFORMATION
  Report Type: 
  Country: None (occurrence: None)
  Receive Date: 20100107
  Receipt Date: 20100104
  Transmission Date: 20100710
  Serious: Yes (Hospitalization)
  Sender: FDA-Public Use
  Company Number: US-BRACCO-003641

PATIENT
  Sex: Female

DRUGS (6)
  1. ISOVUE-128 [Suspect]
     Indication: COMPUTERISED TOMOGRAM
     Route: 042
     Dates: start: 20091021, end: 20091021
  2. EPINEPHRINE [Concomitant]
     Dosage: 1:1000 STRENGTH GIVEN
     Route: 058
     Dates: start: 20091021, end: 20091021
  3. OXYGEN [Concomitant]
     Route: 055
     Dates: start: 20091021, end: 20091021
  4. NORMAL SALINE [Concomitant]
     Route: 042
     Dates: start: 20091021, end: 20091021
  5. BENADRYL [Concomitant]
     Route: 042
     Dates: start: 20091021, end: 20091021
  6. SOLU-CORTEF [Concomitant]
     Route: 042
     Dates: start: 20091021, end: 20091021

REACTIONS (2)
  - DEPRESSED LEVEL OF CONSCIOUSNESS [None]
  - RESPIRATORY DISTRESS [None]
